FAERS Safety Report 8387415-4 (Version None)
Quarter: 2012Q2

REPORT INFORMATION
  Report Type: 
  Country: None (occurrence: None)
  Receive Date: 20120525
  Receipt Date: 20120524
  Transmission Date: 20120825
  Serious: Yes (Other)
  Sender: FDA-Public Use
  Company Number: US-PFIZER INC-2012125730

PATIENT
  Sex: Female
  Weight: 81.633 kg

DRUGS (7)
  1. DURAGESIC-100 [Concomitant]
     Indication: PAIN
     Dosage: UNK
  2. CHANTIX [Suspect]
     Dosage: UNK
     Route: 048
     Dates: start: 20120101, end: 20120401
  3. PERCOCET [Concomitant]
     Indication: PAIN
     Dosage: UNK
  4. CHANTIX [Suspect]
     Indication: SMOKING CESSATION THERAPY
     Dosage: 0.5 MG, 1X/DAY
     Route: 048
     Dates: start: 20110301, end: 20110101
  5. CHANTIX [Suspect]
     Dosage: UNK
     Route: 048
     Dates: start: 20110101, end: 20110401
  6. CHANTIX [Suspect]
     Dosage: 0.5 MG, 1X/DAY
     Route: 048
     Dates: start: 20120301, end: 20120101
  7. NORCO [Concomitant]
     Indication: PAIN
     Dosage: UNK

REACTIONS (4)
  - INTERVERTEBRAL DISC DEGENERATION [None]
  - GASTRIC DISORDER [None]
  - ARTHRITIS [None]
  - HERNIA [None]
